FAERS Safety Report 15862575 (Version 1)
Quarter: 2019Q1

REPORT INFORMATION
  Report Type: Spontaneous
  Country: US (occurrence: US)
  Receive Date: 20190124
  Receipt Date: 20190124
  Transmission Date: 20190417
  Serious: No
  Sender: FDA-Public Use
  Company Number: US-MYLANLABS-2019M1002571

PATIENT
  Sex: Female

DRUGS (1)
  1. LEVOTHYROXINE. [Suspect]
     Active Substance: LEVOTHYROXINE
     Indication: PRODUCT USED FOR UNKNOWN INDICATION
     Dosage: UNK

REACTIONS (7)
  - Oral discomfort [Unknown]
  - Peripheral swelling [Unknown]
  - Urticaria [Unknown]
  - Food allergy [Unknown]
  - Blister [Unknown]
  - Skin fissures [Unknown]
  - Rash generalised [Unknown]
